FAERS Safety Report 19108810 (Version 1)
Quarter: 2021Q2

REPORT INFORMATION
  Report Type: Spontaneous
  Country: JP (occurrence: JP)
  Receive Date: 20210408
  Receipt Date: 20210408
  Transmission Date: 20210717
  Serious: Yes (Other)
  Sender: FDA-Public Use
  Company Number: JP-EXELIXIS-CABO-21039214

PATIENT
  Sex: Male

DRUGS (1)
  1. CABOMETYX [Suspect]
     Active Substance: CABOZANTINIB S-MALATE
     Indication: RENAL CELL CARCINOMA
     Dosage: UNK
     Route: 065
     Dates: start: 20210209

REACTIONS (7)
  - Back pain [Unknown]
  - Peripheral swelling [Unknown]
  - Condition aggravated [Unknown]
  - Diarrhoea [Unknown]
  - Salivary gland neoplasm [Unknown]
  - Blood pressure increased [Unknown]
  - Arthralgia [Unknown]
